FAERS Safety Report 11183104 (Version 4)
Quarter: 2016Q1

REPORT INFORMATION
  Report Type: Report from Study
  Country: CA (occurrence: CA)
  Receive Date: 20150611
  Receipt Date: 20160317
  Transmission Date: 20160525
  Serious: Yes (Hospitalization, Other)
  Sender: FDA-Public Use
  Company Number: CA-ABBVIE-15K-028-1404031-00

PATIENT
  Sex: Female
  Weight: 127.12 kg

DRUGS (6)
  1. HUMIRA [Suspect]
     Active Substance: ADALIMUMAB
     Route: 058
  2. PENICILLIN NOS [Suspect]
     Active Substance: PENICILLIN
     Indication: PHARYNGITIS
     Route: 048
     Dates: start: 2014, end: 2014
  3. FOLIC ACID. [Concomitant]
     Active Substance: FOLIC ACID
     Indication: CROHN^S DISEASE
  4. XARELTO [Suspect]
     Active Substance: RIVAROXABAN
     Indication: PULMONARY THROMBOSIS
     Route: 048
  5. HUMIRA [Suspect]
     Active Substance: ADALIMUMAB
     Indication: CROHN^S DISEASE
     Route: 058
     Dates: start: 20090610, end: 201412
  6. METHOTREXATE [Concomitant]
     Active Substance: METHOTREXATE
     Indication: CROHN^S DISEASE

REACTIONS (20)
  - Stoma site haemorrhage [Unknown]
  - Drug ineffective [Unknown]
  - Pharyngitis [Recovered/Resolved]
  - Pneumonia [Recovered/Resolved]
  - Thrombosis [Recovered/Resolved]
  - Arthralgia [Not Recovered/Not Resolved]
  - Drug hypersensitivity [Recovered/Resolved]
  - Allergic oedema [Recovered/Resolved]
  - Cystitis [Unknown]
  - Thrombosis [Unknown]
  - Weight increased [Not Recovered/Not Resolved]
  - Mobility decreased [Unknown]
  - Pulmonary thrombosis [Unknown]
  - Gastrointestinal stoma complication [Not Recovered/Not Resolved]
  - Kidney infection [Unknown]
  - Intestinal polyp [Not Recovered/Not Resolved]
  - Pulmonary embolism [Recovered/Resolved]
  - Crohn^s disease [Not Recovered/Not Resolved]
  - Fatigue [Not Recovered/Not Resolved]
  - Stoma site ulcer [Not Recovered/Not Resolved]

NARRATIVE: CASE EVENT DATE: 2014
